FAERS Safety Report 6242804-9 (Version None)
Quarter: 2009Q2

REPORT INFORMATION
  Report Type: 
  Country: None (occurrence: None)
  Receive Date: 20090624
  Receipt Date: 20090620
  Transmission Date: 20091009
  Serious: Yes (Hospitalization)
  Sender: FDA-Public Use
  Company Number: US-RB-016895-09

PATIENT
  Age: 39 Year
  Sex: Male

DRUGS (5)
  1. SUBOXONE [Suspect]
     Indication: DRUG DEPENDENCE
     Route: 060
     Dates: start: 20090201, end: 20090602
  2. SUBOXONE [Suspect]
     Route: 060
     Dates: start: 20090603, end: 20090606
  3. EFFEXOR [Concomitant]
     Indication: DEPRESSION
     Route: 065
     Dates: start: 20020101
  4. EFFEXOR [Concomitant]
     Indication: ANXIETY
     Route: 065
     Dates: start: 20020101
  5. KLONOPIN [Concomitant]
     Indication: PANIC ATTACK
     Route: 065
     Dates: start: 20020101

REACTIONS (7)
  - CATHETER SITE HAEMATOMA [None]
  - CONSTIPATION [None]
  - HAEMATOMA [None]
  - INFLUENZA LIKE ILLNESS [None]
  - PAIN [None]
  - THROMBOSIS [None]
  - WITHDRAWAL SYNDROME [None]
